FAERS Safety Report 21986094 (Version 1)
Quarter: 2023Q1

REPORT INFORMATION
  Report Type: Spontaneous
  Country: CN (occurrence: CN)
  Receive Date: 20230213
  Receipt Date: 20230213
  Transmission Date: 20230417
  Serious: Yes (Life-Threatening, Other)
  Sender: FDA-Public Use
  Company Number: CN-AMGEN-CHNSP2023021066

PATIENT
  Age: 72 Year
  Sex: Male
  Weight: 89 kg

DRUGS (7)
  1. XGEVA [Suspect]
     Active Substance: DENOSUMAB
     Indication: Prostate cancer
     Dosage: 120 MILLIGRAM
     Route: 058
     Dates: start: 20221103, end: 20221103
  2. STRONTIUM CHLORIDE [Concomitant]
     Active Substance: STRONTIUM CHLORIDE
     Indication: Prostate cancer
     Dosage: 4 MILLIGRAM
     Route: 040
  3. THROMBOPOIETIN [Concomitant]
     Active Substance: THROMBOPOIETIN
     Dosage: 15000 UNIT, QD
  4. LEUCOGEN [Concomitant]
     Active Substance: LEUCOGEN
     Dosage: 40 MILLIGRAM, TID
  5. ELTROMBOPAG [Concomitant]
     Active Substance: ELTROMBOPAG
     Dosage: 2.5 MILLIGRAM, QD
  6. Iron complex [Concomitant]
     Dosage: 150 MILLIGRAM, QD
  7. AMINO ACIDS, SOURCE UNSPECIFIED [Concomitant]
     Active Substance: AMINO ACIDS, SOURCE UNSPECIFIED

REACTIONS (1)
  - Myelosuppression [Recovering/Resolving]

NARRATIVE: CASE EVENT DATE: 20221121
